FAERS Safety Report 8212608-6 (Version None)
Quarter: 2012Q1

REPORT INFORMATION
  Report Type: 
  Country: None (occurrence: None)
  Receive Date: 20120315
  Receipt Date: 20120307
  Transmission Date: 20120608
  Serious: Yes (Life-Threatening, Hospitalization, Other)
  Sender: FDA-Public Use
  Company Number: US-BAYER-2011-051113

PATIENT
  Age: 48 Year
  Sex: Female
  Weight: 73.923 kg

DRUGS (3)
  1. NORETHINDRONE [Concomitant]
  2. PROQUIN [Concomitant]
     Dosage: UNK
     Dates: start: 20090501
  3. YAZ [Suspect]
     Indication: MENORRHAGIA
     Dosage: UNK
     Route: 048
     Dates: start: 20090512, end: 20090524

REACTIONS (26)
  - HEMIPARESIS [None]
  - DEPRESSED LEVEL OF CONSCIOUSNESS [None]
  - INJURY [None]
  - HYPOAESTHESIA [None]
  - VERBIGERATION [None]
  - VIITH NERVE PARALYSIS [None]
  - SPEECH DISORDER [None]
  - APHASIA [None]
  - CEREBROVASCULAR ACCIDENT [None]
  - CEREBRAL INFARCTION [None]
  - GENERAL PHYSICAL HEALTH DETERIORATION [None]
  - FEELING ABNORMAL [None]
  - ASTHENIA [None]
  - DYSFUNCTIONAL UTERINE BLEEDING [None]
  - ISCHAEMIC CEREBRAL INFARCTION [None]
  - EMOTIONAL DISTRESS [None]
  - CONFUSIONAL STATE [None]
  - AGGRESSION [None]
  - DYSPHAGIA [None]
  - COGNITIVE DISORDER [None]
  - PAIN [None]
  - ANXIETY [None]
  - MOBILITY DECREASED [None]
  - JOINT DISLOCATION [None]
  - MONOPLEGIA [None]
  - PARALYSIS [None]
